FAERS Safety Report 7077658-4 (Version None)
Quarter: 2010Q4

REPORT INFORMATION
  Report Type: 
  Country: None (occurrence: None)
  Receive Date: 20101101
  Receipt Date: 20100927
  Transmission Date: 20110411
  Serious: No
  Sender: FDA-Public Use
  Company Number: US-BAYER-201035159NA

PATIENT
  Age: 27 Year
  Sex: Male

DRUGS (13)
  1. ULTRAVIST 150 [Suspect]
     Indication: COMPUTERISED TOMOGRAM ABDOMEN
     Dosage: AS USED: 100 MG
     Dates: start: 20100927, end: 20100927
  2. NASONEX [Concomitant]
  3. ALLEGRA [Concomitant]
  4. OPTIVAR [Concomitant]
  5. MEDROL [Concomitant]
     Indication: PREMEDICATION
     Dosage: DOSEPAK
     Dates: start: 20100925
  6. MEDROL [Concomitant]
     Dosage: DOSEPAK
     Dates: start: 20100926
  7. MEDROL [Concomitant]
     Dosage: DOSEPACK
     Dates: start: 20100927
  8. ZANTAC [Concomitant]
     Indication: PREMEDICATION
     Dates: start: 20100925
  9. ZANTAC [Concomitant]
     Dates: start: 20100926
  10. ZANTAC [Concomitant]
     Dates: start: 20100927
  11. BENADRYL [Concomitant]
     Indication: PREMEDICATION
     Dates: start: 20100925
  12. BENADRYL [Concomitant]
     Dates: start: 20100926
  13. BENADRYL [Concomitant]
     Dates: start: 20100927

REACTIONS (4)
  - FLUSHING [None]
  - NASAL CONGESTION [None]
  - PRURITUS [None]
  - URTICARIA [None]
